FAERS Safety Report 8073306-5 (Version None)
Quarter: 2011Q4

REPORT INFORMATION
  Report Type: 
  Country: None (occurrence: None)
  Receive Date: 20111221
  Receipt Date: 20101124
  Transmission Date: 20120403
  Serious: Yes (Hospitalization, Other)
  Sender: FDA-Public Use
  Company Number: PHEH2010US03044

PATIENT
  Age: 16 Year
  Sex: Female
  Weight: 65 kg

DRUGS (2)
  1. EXJADE [Suspect]
     Indication: IRON OVERLOAD
     Dosage: 500 MG, QD, ORAL
     Route: 048
  2. EXJADE [Suspect]
     Indication: SICKLE CELL ANAEMIA
     Dosage: 500 MG, QD, ORAL
     Route: 048

REACTIONS (2)
  - CHOLECYSTECTOMY [None]
  - CHOLELITHIASIS [None]
